FAERS Safety Report 8081975-9 (Version None)
Quarter: 2012Q1

REPORT INFORMATION
  Report Type: 
  Country: None (occurrence: None)
  Receive Date: 20120130
  Receipt Date: 20111018
  Transmission Date: 20120608
  Serious: No
  Sender: FDA-Public Use
  Company Number: US-ABBOTT-11P-163-0864318-00

PATIENT
  Sex: Male
  Weight: 78.088 kg

DRUGS (3)
  1. LUPRON DEPOT [Suspect]
     Indication: PROSTATE CANCER
     Dates: start: 20110916
  2. VITAMIN TAB [Concomitant]
     Indication: VITAMIN SUPPLEMENTATION
  3. LUPRON DEPOT [Suspect]
     Indication: PROSTATE CANCER
     Route: 030
     Dates: start: 20110616

REACTIONS (4)
  - INJECTION SITE INDURATION [None]
  - HOT FLUSH [None]
  - INJECTION SITE SWELLING [None]
  - INJECTION SITE DISCOMFORT [None]
